FAERS Safety Report 20942577 (Version 2)
Quarter: 2022Q2

REPORT INFORMATION
  Report Type: Report from Study
  Country: BR (occurrence: BR)
  Receive Date: 20220610
  Receipt Date: 20220630
  Transmission Date: 20220721
  Serious: Yes (Other)
  Sender: FDA-Public Use
  Company Number: BR-ABBVIE-22K-020-4425340-00

PATIENT
  Age: 57 Year
  Sex: Female
  Weight: 84 kg

DRUGS (4)
  1. SKYRIZI [Suspect]
     Active Substance: RISANKIZUMAB-RZAA
     Indication: Psoriasis
     Dosage: 2 SYRINGES
     Route: 058
     Dates: start: 20210820
  2. SERTRALINE [Concomitant]
     Active Substance: SERTRALINE HYDROCHLORIDE
     Indication: Depression
  3. QUETIAPINE [Concomitant]
     Active Substance: QUETIAPINE
     Indication: Depression
  4. LITHIUM [Concomitant]
     Active Substance: LITHIUM
     Indication: Depression

REACTIONS (3)
  - Retinopathy hypertensive [Not Recovered/Not Resolved]
  - Ophthalmic vein thrombosis [Recovering/Resolving]
  - Psoriasis [Unknown]

NARRATIVE: CASE EVENT DATE: 20211001
